FAERS Safety Report 8231852-5 (Version None)
Quarter: 2012Q1

REPORT INFORMATION
  Report Type: 
  Country: None (occurrence: None)
  Receive Date: 20120323
  Receipt Date: 20120313
  Transmission Date: 20120608
  Serious: Yes (Death, Other)
  Sender: FDA-Public Use
  Company Number: JP-JNJFOC-20120307951

PATIENT
  Age: 5 Decade
  Sex: Male
  Weight: 61 kg

DRUGS (19)
  1. EPIVIR [Concomitant]
     Indication: HIV INFECTION
     Route: 048
     Dates: start: 20050401, end: 20100106
  2. RETROVIR [Concomitant]
     Indication: HIV INFECTION
     Route: 048
     Dates: start: 20050401, end: 20100106
  3. REYATAZ [Concomitant]
     Route: 048
     Dates: start: 20050401, end: 20081119
  4. ALLOPURINOL [Concomitant]
     Indication: HYPERURICAEMIA
     Route: 048
  5. FOIPAN [Concomitant]
     Indication: GASTROINTESTINAL DISORDER
     Route: 048
  6. GLYCYRON [Concomitant]
     Indication: HEPATITIS
     Route: 048
  7. REYATAZ [Concomitant]
     Indication: HIV INFECTION
     Route: 048
     Dates: start: 20090109, end: 20110312
  8. GASMOTIN [Concomitant]
     Indication: GASTROINTESTINAL DISORDER
     Route: 048
  9. FAMOTIDINE [Concomitant]
     Indication: GASTROINTESTINAL DISORDER
     Route: 048
  10. NICARDIPINE HCL [Concomitant]
     Indication: HYPERTENSION
     Route: 048
  11. BERIZYM [Concomitant]
     Indication: GASTROINTESTINAL DISORDER
     Route: 048
  12. ISENTRESS [Concomitant]
     Indication: HIV INFECTION
     Route: 048
     Dates: start: 20081120, end: 20090108
  13. VIREAD [Concomitant]
     Indication: HIV INFECTION
     Route: 048
     Dates: start: 20100107, end: 20110312
  14. PANCREAZE [Concomitant]
     Indication: GASTROINTESTINAL DISORDER
     Route: 048
  15. URSO 250 [Concomitant]
     Indication: HEPATITIS
     Route: 048
  16. INTELENCE [Suspect]
     Indication: HIV INFECTION
     Route: 048
     Dates: start: 20100107, end: 20110312
  17. SELBEX [Concomitant]
     Indication: GASTRITIS
     Route: 048
  18. LOPERAMIDE HCL [Concomitant]
     Indication: DIARRHOEA
     Route: 048
  19. CROSS EIGHT M [Concomitant]
     Indication: HAEMOPHILIA
     Route: 050

REACTIONS (12)
  - HEPATORENAL SYNDROME [None]
  - PNEUMONIA [None]
  - URINARY TRACT INFECTION [None]
  - ASCITES [None]
  - HEPATIC ENCEPHALOPATHY [None]
  - DIARRHOEA [None]
  - HAEMARTHROSIS [None]
  - MUCOUS STOOLS [None]
  - RESPIRATORY DISORDER [None]
  - SEPTIC SHOCK [None]
  - PYREXIA [None]
  - ENCEPHALITIS VIRAL [None]
